FAERS Safety Report 5168264-7 (Version None)
Quarter: 2006Q4

REPORT INFORMATION
  Report Type: 
  Country: None (occurrence: None)
  Receive Date: 20061208
  Receipt Date: 20020128
  Transmission Date: 20070319
  Serious: Yes (Hospitalization)
  Sender: FDA-Public Use
  Company Number: FR-ROCHE-305893

PATIENT
  Age: 5 Year
  Sex: Male
  Weight: 3.4 kg

DRUGS (5)
  1. HIVID [Suspect]
     Indication: DRUG USE FOR UNKNOWN INDICATION
     Dates: end: 19960530
  2. EPIVIR [Suspect]
     Indication: DRUG USE FOR UNKNOWN INDICATION
  3. RETROVIR [Suspect]
     Indication: DRUG USE FOR UNKNOWN INDICATION
     Dates: start: 19960530
  4. BACTRIM [Suspect]
     Indication: DRUG USE FOR UNKNOWN INDICATION
  5. RETROVIR [Concomitant]
     Dates: start: 19970108, end: 19970108

REACTIONS (2)
  - COMMUNICATION DISORDER [None]
  - DRUG EXPOSURE DURING PREGNANCY [None]
